FAERS Safety Report 6668250-1 (Version None)
Quarter: 2010Q2

REPORT INFORMATION
  Report Type: 
  Country: None (occurrence: None)
  Receive Date: 20100406
  Receipt Date: 20100326
  Transmission Date: 20101027
  Serious: Yes (Other)
  Sender: FDA-Public Use
  Company Number: US-JNJFOC-20100308542

PATIENT
  Age: 51 Year
  Sex: Male
  Weight: 89.81 kg

DRUGS (8)
  1. TYLENOL [Suspect]
     Route: 048
  2. TYLENOL [Suspect]
     Indication: ARTHRITIS
     Route: 048
  3. DILTIAZEM HCL [Concomitant]
     Indication: HYPERTENSION
  4. GABAPENTIN [Concomitant]
     Indication: CONVULSION
  5. HUMIRA [Concomitant]
     Indication: ARTHRITIS
  6. HUMIRA [Concomitant]
     Indication: PSORIASIS
  7. ASPIRIN [Concomitant]
     Indication: PROPHYLAXIS
  8. NEXIUM [Concomitant]
     Indication: DYSPEPSIA

REACTIONS (3)
  - HEPATIC ENZYME INCREASED [None]
  - HEPATOMEGALY [None]
  - PRODUCT QUALITY ISSUE [None]
